FAERS Safety Report 11065419 (Version 2)
Quarter: 2015Q2

REPORT INFORMATION
  Report Type: Spontaneous
  Country: US (occurrence: US)
  Receive Date: 20150425
  Receipt Date: 20150525
  Transmission Date: 20150821
  Serious: No
  Sender: FDA-Public Use
  Company Number: US-JNJFOC-20131102703

PATIENT
  Age: 44 Year
  Sex: Male
  Weight: 289 kg

DRUGS (1)
  1. STELARA [Suspect]
     Active Substance: USTEKINUMAB
     Indication: PSORIATIC ARTHROPATHY
     Dosage: AND 4 WEEKS LATER FOLLOWED BY??90MG EVERY 12 WEEKS
     Route: 058
     Dates: start: 20131105

REACTIONS (3)
  - Accidental exposure to product [Recovered/Resolved]
  - Device malfunction [Unknown]
  - Device leakage [Unknown]

NARRATIVE: CASE EVENT DATE: 20131105
